FAERS Safety Report 5788909-8 (Version None)
Quarter: 2008Q2

REPORT INFORMATION
  Report Type: 
  Country: None (occurrence: None)
  Receive Date: 20080626
  Receipt Date: 20071112
  Transmission Date: 20081010
  Serious: No
  Sender: FDA-Public Use
  Company Number: US-ASTRAZENECA-2007UW26319

PATIENT
  Age: 84 Year
  Sex: Female
  Weight: 63.5 kg

DRUGS (4)
  1. PULMICORT FLEXHALER [Suspect]
     Route: 055
  2. FORADIL [Concomitant]
  3. MICARDIS [Concomitant]
  4. ATENOLOL [Concomitant]
     Route: 048

REACTIONS (2)
  - COW'S MILK INTOLERANCE [None]
  - DYSPHONIA [None]
